FAERS Safety Report 4273769-7 (Version None)
Quarter: 2004Q1

REPORT INFORMATION
  Report Type: 
  Country: None (occurrence: None)
  Receive Date: 20040114
  Receipt Date: 20031229
  Transmission Date: 20041129
  Serious: Yes (Hospitalization)
  Sender: FDA-Public Use
  Company Number: 200322150GDDC

PATIENT
  Age: 35 Year
  Sex: Male

DRUGS (1)
  1. LORELCO [Suspect]
     Dosage: 500 MG/DAY PO
     Route: 048
     Dates: start: 20030820, end: 20030920

REACTIONS (3)
  - BLOOD CHOLESTEROL INCREASED [None]
  - BLOOD CREATINE PHOSPHOKINASE INCREASED [None]
  - MALAISE [None]
